FAERS Safety Report 5974317-3 (Version None)
Quarter: 2008Q4

REPORT INFORMATION
  Report Type: 
  Country: None (occurrence: None)
  Receive Date: 20081201
  Receipt Date: 20081126
  Transmission Date: 20090506
  Serious: No
  Sender: FDA-Public Use
  Company Number: GB-PFIZER INC-2008090743

PATIENT
  Sex: Male

DRUGS (1)
  1. CHAMPIX [Suspect]
     Indication: SMOKING CESSATION THERAPY
     Route: 048
     Dates: start: 20081019, end: 20081027

REACTIONS (2)
  - EYE HAEMORRHAGE [None]
  - OCULAR HYPERAEMIA [None]
